FAERS Safety Report 21532298 (Version 1)
Quarter: 2022Q4

REPORT INFORMATION
  Report Type: Report from Study
  Country: CA (occurrence: CA)
  Receive Date: 20221101
  Receipt Date: 20221101
  Transmission Date: 20230113
  Serious: Yes (Other)
  Sender: FDA-Public Use
  Company Number: CA-NOVARTISPH-NVSC2022CA242439

PATIENT
  Age: 52 Year
  Sex: Female

DRUGS (1)
  1. KESIMPTA [Suspect]
     Active Substance: OFATUMUMAB
     Indication: Relapsing-remitting multiple sclerosis
     Dosage: UNK
     Route: 058
     Dates: start: 20220919

REACTIONS (6)
  - Neuropathy peripheral [Not Recovered/Not Resolved]
  - Gait disturbance [Unknown]
  - Balance disorder [Unknown]
  - Limb discomfort [Unknown]
  - Fatigue [Unknown]
  - Injection related reaction [Recovered/Resolved]

NARRATIVE: CASE EVENT DATE: 20220901
